FAERS Safety Report 17560399 (Version 3)
Quarter: 2020Q4

REPORT INFORMATION
  Report Type: Spontaneous
  Country: US (occurrence: US)
  Receive Date: 20200319
  Receipt Date: 20201214
  Transmission Date: 20210113
  Serious: No
  Sender: FDA-Public Use
  Company Number: US-PFIZER INC-2020082620

PATIENT
  Age: 54 Year
  Sex: Male

DRUGS (1)
  1. LYRICA [Suspect]
     Active Substance: PREGABALIN
     Indication: NEUROPATHY PERIPHERAL
     Dosage: UNK, 1X/DAY (150 QD (ONE A DAY)

REACTIONS (3)
  - Pain [Unknown]
  - Gait disturbance [Unknown]
  - Frustration tolerance decreased [Unknown]
